FAERS Safety Report 16527935 (Version 5)
Quarter: 2019Q4

REPORT INFORMATION
  Report Type: Spontaneous
  Country: JP (occurrence: JP)
  Receive Date: 20190703
  Receipt Date: 20191021
  Transmission Date: 20200122
  Serious: Yes (Death, Life-Threatening, Hospitalization, Other)
  Sender: FDA-Public Use
  Company Number: JP-ELI_LILLY_AND_COMPANY-JP201905014672

PATIENT
  Age: 67 Year
  Sex: Female

DRUGS (14)
  1. PYDOXAL [Concomitant]
     Active Substance: PYRIDOXAL
  2. CLARITH [Concomitant]
     Active Substance: CLARITHROMYCIN
     Indication: CHRONIC SINUSITIS
     Dosage: 200 MG, DAILY
     Dates: start: 20140703, end: 20190611
  3. METHOTREXATE. [Concomitant]
     Active Substance: METHOTREXATE
     Dosage: 6 MG, WEEKLY (1/W)
     Dates: end: 20120527
  4. CELECOX [Concomitant]
     Active Substance: CELECOXIB
  5. FOLIAMIN [Concomitant]
     Active Substance: FOLIC ACID
  6. GASTER [FAMOTIDINE] [Concomitant]
  7. LYRICA [Concomitant]
     Active Substance: PREGABALIN
  8. DENOTAS [Concomitant]
     Active Substance: CALCIUM CARBONATE\CHOLECALCIFEROL\MAGNESIUM CARBONATE
  9. METHYCOBAL [Concomitant]
     Active Substance: METHYLCOBALAMIN
  10. OLUMIANT [Suspect]
     Active Substance: BARICITINIB
     Indication: RHEUMATOID ARTHRITIS
     Dosage: 4 MG, DAILY
     Route: 048
     Dates: start: 20190423
  11. METHOTREXATE. [Concomitant]
     Active Substance: METHOTREXATE
     Dosage: 12 MG, WEEKLY (1/W)
     Dates: start: 20120528
  12. MUCODYNE [Concomitant]
     Active Substance: CARBOCYSTEINE
     Indication: CHRONIC SINUSITIS
     Dosage: 1500 MG, DAILY
     Dates: start: 20140703, end: 20190611
  13. SELBEX [Concomitant]
     Active Substance: TEPRENONE
  14. ISCOTIN [Concomitant]
     Active Substance: ISONIAZID
     Indication: PROPHYLAXIS
     Dosage: 300 MG, DAILY
     Dates: start: 20120525, end: 20190611

REACTIONS (3)
  - Disseminated intravascular coagulation [Recovering/Resolving]
  - Pneumocystis jirovecii pneumonia [Fatal]
  - Somnolence [Unknown]

NARRATIVE: CASE EVENT DATE: 20190424
